FAERS Safety Report 9888226 (Version 4)
Quarter: 2014Q3

REPORT INFORMATION
  Report Type: Report from Study
  Country: US (occurrence: US)
  Receive Date: 20140211
  Receipt Date: 20140912
  Transmission Date: 20150326
  Serious: No
  Sender: FDA-Public Use
  Company Number: US-ALEXION-A201400391

PATIENT

DRUGS (1)
  1. SOLIRIS [Suspect]
     Active Substance: ECULIZUMAB
     Indication: PAROXYSMAL NOCTURNAL HAEMOGLOBINURIA
     Dosage: 900 MG, Q2W
     Route: 042
     Dates: start: 20140128

REACTIONS (14)
  - Chills [Unknown]
  - Headache [Unknown]
  - Fatigue [Unknown]
  - Respiratory tract infection [Recovered/Resolved]
  - Nausea [Unknown]
  - Pyrexia [Recovered/Resolved]
  - Malaise [Unknown]
  - Body temperature increased [Not Recovered/Not Resolved]
  - Pain [Unknown]
  - Cystitis interstitial [Not Recovered/Not Resolved]
  - Gastroenteritis viral [Recovered/Resolved]
  - Pyrexia [Not Recovered/Not Resolved]
  - Haptoglobin abnormal [Recovered/Resolved]
  - Headache [Not Recovered/Not Resolved]

NARRATIVE: CASE EVENT DATE: 20140128
